FAERS Safety Report 5035519-6 (Version None)
Quarter: 2006Q2

REPORT INFORMATION
  Report Type: 
  Country: None (occurrence: None)
  Receive Date: 20060526
  Receipt Date: 20060216
  Transmission Date: 20061013
  Serious: No
  Sender: FDA-Public Use
  Company Number: 222239

PATIENT
  Age: 13 Year
  Sex: Female
  Weight: 79.4 kg

DRUGS (1)
  1. RAPTIVA [Suspect]
     Indication: PSORIASIS
     Dosage: 0.8 ML, 1/WEEK, SUBCUTANEOUS
     Route: 058
     Dates: start: 20051219

REACTIONS (3)
  - ONYCHOMADESIS [None]
  - PHARYNGEAL OEDEMA [None]
  - SKIN EXFOLIATION [None]
